FAERS Safety Report 10176529 (Version 3)
Quarter: 2014Q4

REPORT INFORMATION
  Report Type: Spontaneous
  Country: AU (occurrence: AU)
  Receive Date: 20140516
  Receipt Date: 20141118
  Transmission Date: 20150528
  Serious: Yes (Death, Other)
  Sender: FDA-Public Use
  Company Number: AU-ABBVIE-14P-008-1237788-00

PATIENT
  Sex: Female
  Weight: 31 kg

DRUGS (2)
  1. HUMIRA [Suspect]
     Active Substance: ADALIMUMAB
     Indication: ARTHRITIS
     Route: 065
  2. HUMIRA [Suspect]
     Active Substance: ADALIMUMAB
     Indication: PSORIATIC ARTHROPATHY

REACTIONS (4)
  - Arthralgia [Unknown]
  - Acute myeloid leukaemia [Fatal]
  - Unevaluable event [Unknown]
  - Cough [Unknown]

NARRATIVE: CASE EVENT DATE: 2013
